FAERS Safety Report 8764447 (Version 1)
Quarter: 2012Q4

REPORT INFORMATION
  Report Type: 
  Country: US (occurrence: US)
  Receive Date: 20120831
  Receipt Date: 20120831
  Transmission Date: 20130627
  Serious: Yes (Life-Threatening, Other)
  Sender: FDA-Public Use
  Company Number: PHHY2012US074589

PATIENT
  Age: 49 Year
  Sex: Female

DRUGS (18)
  1. SIMULECT [Suspect]
     Indication: LIVER TRANSPLANT
  2. CICLOSPORIN [Suspect]
     Indication: LIVER TRANSPLANT
     Dosage: UNK UKN, UNK
  3. CICLOSPORIN [Suspect]
     Dosage: 75 mg, BID
  4. MYCOPHENOLATE MOFETIL [Concomitant]
     Indication: LIVER TRANSPLANT
  5. PREDNISONE [Concomitant]
     Indication: LIVER TRANSPLANT
     Dosage: UNK UKN, UNK
  6. PREDNISONE [Concomitant]
     Dosage: 4 mg, daily
  7. PREDNISONE [Concomitant]
     Dosage: 20 mg, daily
  8. PREDNISONE [Concomitant]
     Dosage: 5 mg, daily
  9. AZATHIOPRINE [Concomitant]
     Indication: LIVER TRANSPLANT
  10. PANTOPRAZOLE [Concomitant]
     Dosage: 40 mg, day
  11. NIFEDIPINE [Concomitant]
     Dosage: 60 mg, day
  12. LASIX [Concomitant]
     Dosage: 20 mg, daily
  13. URSODEOXYCHOLIC ACID [Concomitant]
     Dosage: 600 mg, daily
  14. ERYTHROPOIETIN [Concomitant]
     Dosage: 20000 U, per week
  15. ATENOLOL [Concomitant]
     Dosage: 25 mg, daily
  16. INSULIN [Concomitant]
     Indication: DIABETES MELLITUS
  17. CALCIUM [Concomitant]
  18. VITAMIN D [Concomitant]

REACTIONS (15)
  - Liver transplant rejection [Unknown]
  - Complications of transplanted liver [Unknown]
  - Hepatic fibrosis [Recovering/Resolving]
  - Hepatitis cholestatic [Recovering/Resolving]
  - Inflammation [Recovering/Resolving]
  - Lymphocytic infiltration [Recovering/Resolving]
  - Hepatic necrosis [Recovering/Resolving]
  - Herpes zoster [Recovering/Resolving]
  - Hepatitis C [Unknown]
  - Hepatic enzyme increased [Unknown]
  - Encephalopathy [Unknown]
  - Coagulopathy [None]
  - Liver transplant [None]
  - Surgical procedure repeated [None]
  - Hepatitis C [None]
